FAERS Safety Report 6099964-2 (Version None)
Quarter: 2009Q1

REPORT INFORMATION
  Report Type: 
  Country: None (occurrence: None)
  Receive Date: 20090303
  Receipt Date: 20090210
  Transmission Date: 20090719
  Serious: Yes (Disabling)
  Sender: FDA-Public Use
  Company Number: PHEH2008US11037

PATIENT
  Sex: Female
  Weight: 88.889 kg

DRUGS (5)
  1. GLEEVEC [Suspect]
     Indication: CHRONIC MYELOID LEUKAEMIA
     Dosage: 400 MG, QD
     Route: 048
     Dates: start: 20020101
  2. ACIPHEX [Concomitant]
     Dosage: UNK
     Route: 048
  3. CALCIUM WITH VITAMIN D [Concomitant]
  4. FOLIC ACID [Concomitant]
     Dosage: UNK
     Route: 048
  5. AMBIEN [Concomitant]
     Dosage: 5MG DAILY PRN

REACTIONS (4)
  - FEELING HOT [None]
  - LIMB DISCOMFORT [None]
  - OEDEMA PERIPHERAL [None]
  - PAIN IN EXTREMITY [None]
